FAERS Safety Report 7152798-X (Version None)
Quarter: 2010Q4

REPORT INFORMATION
  Report Type: 
  Country: None (occurrence: None)
  Receive Date: 20101213
  Receipt Date: 20101129
  Transmission Date: 20110411
  Serious: Yes (Other)
  Sender: FDA-Public Use
  Company Number: PHHY2010IT12601

PATIENT
  Age: 78 Year
  Sex: Female

DRUGS (11)
  1. ZOMETA [Suspect]
     Indication: MULTIPLE MYELOMA
     Dosage: UNK
     Dates: start: 20030901, end: 20050701
  2. MELPHALAN HYDROCHLORIDE [Concomitant]
     Dosage: UNK
     Dates: start: 20030901, end: 20050201
  3. MELPHALAN HYDROCHLORIDE [Concomitant]
     Dosage: UNK
     Dates: start: 20060101, end: 20060201
  4. MELPHALAN HYDROCHLORIDE [Concomitant]
     Dosage: UNK
     Dates: start: 20061201
  5. PREDNISONE [Concomitant]
     Indication: MULTIPLE MYELOMA
     Dosage: UNK
     Dates: start: 20030901, end: 20050201
  6. PREDNISONE [Concomitant]
     Dosage: UNK
     Dates: start: 20060101, end: 20060201
  7. PREDNISONE [Concomitant]
     Dosage: UNK
     Dates: start: 20061201
  8. EPOETIN ALFA [Concomitant]
     Dosage: UNK
     Dates: start: 20030901
  9. THALIDOMIDE [Concomitant]
     Dosage: UNK
     Dates: start: 20070101
  10. DEXAMETHASONE [Concomitant]
     Dosage: UNK
     Dates: start: 20070101
  11. EPOETIN BETA [Concomitant]
     Dosage: UNK
     Dates: start: 20070101

REACTIONS (11)
  - BONE DISORDER [None]
  - BREATH ODOUR [None]
  - EPISTAXIS [None]
  - MOUTH ULCERATION [None]
  - MULTIPLE MYELOMA [None]
  - OROANTRAL FISTULA [None]
  - OSTEONECROSIS OF JAW [None]
  - PRIMARY SEQUESTRUM [None]
  - RHINORRHOEA [None]
  - SCAB [None]
  - TOOTH EXTRACTION [None]
